FAERS Safety Report 20580258 (Version 1)
Quarter: 2022Q1

REPORT INFORMATION
  Report Type: Spontaneous
  Country: CN (occurrence: None)
  Receive Date: 20220310
  Receipt Date: 20220310
  Transmission Date: 20220424
  Serious: Yes (Hospitalization, Other)
  Sender: FDA-Public Use
  Company Number: 2022A100445

PATIENT
  Age: 52 Year
  Sex: Female

DRUGS (4)
  1. OSIMERTINIB MESYLATE [Suspect]
     Active Substance: OSIMERTINIB MESYLATE
     Indication: Lung neoplasm malignant
     Route: 048
     Dates: start: 20220215, end: 20220225
  2. CARBOPLATIN [Suspect]
     Active Substance: CARBOPLATIN
     Indication: Lung neoplasm malignant
     Route: 041
     Dates: start: 20220215, end: 20220215
  3. PEMETREXED DISODIUM [Suspect]
     Active Substance: PEMETREXED DISODIUM
     Indication: Lung neoplasm malignant
     Route: 041
     Dates: start: 20220215, end: 20220215
  4. BEVACIZUMAB [Suspect]
     Active Substance: BEVACIZUMAB
     Indication: Lung neoplasm malignant
     Route: 041
     Dates: start: 20220215, end: 20220215

REACTIONS (3)
  - Hepatic function abnormal [Unknown]
  - Hyponatraemia [Unknown]
  - Hypokalaemia [Unknown]

NARRATIVE: CASE EVENT DATE: 20220225
